FAERS Safety Report 9391293 (Version 1)
Quarter: 2013Q3

REPORT INFORMATION
  Report Type: Report from Study
  Country: HR (occurrence: HR)
  Receive Date: 20130709
  Receipt Date: 20130709
  Transmission Date: 20140515
  Serious: Yes (Hospitalization)
  Sender: FDA-Public Use
  Company Number: HR-SANOFI-AVENTIS-2013SA066812

PATIENT
  Age: 76 Year
  Sex: Male
  Weight: 96 kg

DRUGS (12)
  1. LANTUS SOLOSTAR [Suspect]
     Indication: TYPE 2 DIABETES MELLITUS
     Route: 058
     Dates: start: 20121012
  2. SOLOSTAR [Suspect]
     Indication: TYPE 2 DIABETES MELLITUS
     Dates: start: 20121012
  3. APIDRA [Concomitant]
     Indication: TYPE 2 DIABETES MELLITUS
     Dosage: 26IU+18IU+26IU/DAY
     Route: 058
  4. EXFORGE [Concomitant]
     Indication: HYPERTENSION
     Dosage: 10/160 MG
     Route: 048
  5. TERTENSIF - SLOW RELEASE [Concomitant]
     Indication: HYPERTENSION
     Route: 048
  6. CITRIC ACID/POTASSIUM BICARBONATE/POTASSIUM CITRATE [Concomitant]
     Indication: ELECTROLYTE SUBSTITUTION THERAPY
     Dosage: 1/2 PER 2 DAYS
  7. ISOSORBIDE MONONITRATE [Concomitant]
     Indication: ANGINA PECTORIS
     Dosage: 20 MG 2 PER 1 DAY
     Route: 048
  8. NEBILET [Concomitant]
     Indication: HYPERTENSION
     Route: 048
  9. FURSEMID [Concomitant]
     Route: 048
  10. PHYSIOTENS [Concomitant]
     Indication: HYPERTENSION
     Route: 048
  11. ASPIRIN [Concomitant]
     Indication: CARDIOVASCULAR EVENT PROPHYLAXIS
     Route: 048
  12. SORTIS [Concomitant]
     Indication: DYSLIPIDAEMIA
     Route: 048

REACTIONS (2)
  - Angina pectoris [Recovered/Resolved]
  - Hypertension [Recovered/Resolved]
